FAERS Safety Report 24981347 (Version 3)
Quarter: 2025Q2

REPORT INFORMATION
  Report Type: Spontaneous
  Country: TR (occurrence: TR)
  Receive Date: 20250218
  Receipt Date: 20250409
  Transmission Date: 20250717
  Serious: No
  Sender: JOHNSON AND JOHNSON
  Company Number: TR-JNJFOC-20250234489

PATIENT

DRUGS (2)
  1. SIMPONI [Suspect]
     Active Substance: GOLIMUMAB
     Indication: Product used for unknown indication
     Route: 058
  2. SIMPONI [Suspect]
     Active Substance: GOLIMUMAB
     Indication: Product used for unknown indication
     Route: 058

REACTIONS (1)
  - Device issue [Unknown]
